FAERS Safety Report 18917084 (Version 1)
Quarter: 2021Q1

REPORT INFORMATION
  Report Type: Spontaneous
  Country: JP (occurrence: JP)
  Receive Date: 20210219
  Receipt Date: 20210219
  Transmission Date: 20210420
  Serious: Yes (Hospitalization)
  Sender: FDA-Public Use
  Company Number: JP-PFIZER INC-2021126709

PATIENT
  Sex: Female

DRUGS (3)
  1. WYPAX [Suspect]
     Active Substance: LORAZEPAM
     Indication: AUTONOMIC NERVOUS SYSTEM IMBALANCE
     Dosage: 3 TO 2 TIMES A DAY
     Route: 048
  2. WYPAX [Suspect]
     Active Substance: LORAZEPAM
     Indication: ANXIETY
     Dosage: 0.5 (UNIT UNKNOWN), 1X/DAY
     Route: 048
     Dates: end: 20210127
  3. WYPAX [Suspect]
     Active Substance: LORAZEPAM
     Indication: PALPITATIONS

REACTIONS (5)
  - Vomiting [Unknown]
  - Withdrawal syndrome [Unknown]
  - Intentional product use issue [Unknown]
  - Urethritis [Unknown]
  - Dehydration [Unknown]

NARRATIVE: CASE EVENT DATE: 20210127
